FAERS Safety Report 8269911-3 (Version None)
Quarter: 2012Q2

REPORT INFORMATION
  Report Type: 
  Country: None (occurrence: None)
  Receive Date: 20120410
  Receipt Date: 20120405
  Transmission Date: 20120825
  Serious: No
  Sender: FDA-Public Use
  Company Number: US-PFIZER INC-2012087322

PATIENT
  Sex: Male

DRUGS (2)
  1. GEODON [Suspect]
     Dosage: 20 MG, UNK
  2. GEODON [Suspect]
     Dosage: 80 MG, UNK

REACTIONS (1)
  - DRUG INEFFECTIVE [None]
